FAERS Safety Report 6184112-0 (Version None)
Quarter: 2009Q2

REPORT INFORMATION
  Report Type: 
  Country: None (occurrence: None)
  Receive Date: 20090508
  Receipt Date: 20090427
  Transmission Date: 20091009
  Serious: Yes (Hospitalization, Other)
  Sender: FDA-Public Use
  Company Number: PHHY2009JP15884

PATIENT
  Age: 51 Year
  Sex: Female

DRUGS (3)
  1. ZOMETA [Suspect]
     Indication: METASTASES TO BONE
     Dosage: UNK
     Route: 041
     Dates: start: 20070201, end: 20070901
  2. ZOMETA [Suspect]
     Dosage: UNK
  3. BISPHONAL [Suspect]
     Indication: METASTASES TO BONE
     Dosage: UNK
     Route: 041
     Dates: start: 20010101

REACTIONS (4)
  - EATING DISORDER [None]
  - GASTRIC ULCER [None]
  - INFLAMMATORY PAIN [None]
  - OSTEOMYELITIS [None]
